FAERS Safety Report 7556219-4 (Version None)
Quarter: 2011Q2

REPORT INFORMATION
  Report Type: 
  Country: None (occurrence: None)
  Receive Date: 20110615
  Receipt Date: 20110615
  Transmission Date: 20111010
  Serious: Yes (Hospitalization)
  Sender: FDA-Public Use
  Company Number: None

PATIENT
  Sex: Female
  Weight: 72.5755 kg

DRUGS (1)
  1. AZATHIOPRINE [Suspect]
     Indication: RHEUMATOID ARTHRITIS
     Dosage: 25MG -1/2 TABLET- THREE TIMES WEEKLY PO
     Route: 048
     Dates: start: 20110609, end: 20110613

REACTIONS (2)
  - SWELLING FACE [None]
  - LIP SWELLING [None]
